FAERS Safety Report 5091594-4 (Version None)
Quarter: 2006Q3

REPORT INFORMATION
  Report Type: 
  Country: None (occurrence: None)
  Receive Date: 20060829
  Receipt Date: 20060818
  Transmission Date: 20061208
  Serious: Yes (Other)
  Sender: FDA-Public Use
  Company Number: DE-JNJFOC-20060804384

PATIENT
  Age: 84 Year
  Sex: Female

DRUGS (2)
  1. DURAGESIC-100 [Suspect]
     Indication: BACK PAIN
     Route: 062
  2. DURAGESIC-100 [Suspect]
     Indication: OSTEOARTHRITIS
     Route: 062

REACTIONS (8)
  - ASTHENIA [None]
  - CHILLS [None]
  - CONSTIPATION [None]
  - DEPRESSION [None]
  - HYPERHIDROSIS [None]
  - HYPERTENSIVE CRISIS [None]
  - NAUSEA [None]
  - RESTLESSNESS [None]
